FAERS Safety Report 4982530-7 (Version None)
Quarter: 2006Q1

REPORT INFORMATION
  Report Type: 
  Country: None (occurrence: None)
  Receive Date: 20060227
  Receipt Date: 20051116
  Transmission Date: 20060701
  Serious: Yes (Hospitalization)
  Sender: FDA-Public Use
  Company Number: WAES 0511USA03064

PATIENT
  Age: 79 Year
  Sex: Male

DRUGS (3)
  1. ZOCOR [Suspect]
     Dosage: 40 MG/PO
     Route: 048
     Dates: end: 20051101
  2. TARKA [Concomitant]
  3. NIACIN [Concomitant]

REACTIONS (3)
  - BLOOD CREATINE PHOSPHOKINASE INCREASED [None]
  - MYALGIA [None]
  - RED BLOOD CELL SEDIMENTATION RATE INCREASED [None]
